FAERS Safety Report 7409366-1 (Version None)
Quarter: 2011Q2

REPORT INFORMATION
  Report Type: 
  Country: None (occurrence: None)
  Receive Date: 20110412
  Receipt Date: 20110330
  Transmission Date: 20111010
  Serious: Yes (Hospitalization, Other)
  Sender: FDA-Public Use
  Company Number: JP-BAYER-201016613GPV

PATIENT
  Age: 80 Year
  Sex: Male
  Weight: 63 kg

DRUGS (15)
  1. ASPIRIN [Concomitant]
     Indication: EPILEPSY
     Dosage: 100 MG (DAILY DOSE), QD, ORAL
     Route: 048
     Dates: start: 20100407
  2. GLUCOBAY [Suspect]
     Indication: DIABETES MELLITUS
     Dosage: UNK
  3. LOSARTAN POTASSIUM AND HYDROCHLOROTHIAZIDE [Concomitant]
     Indication: HYPERTENSION
  4. SORAFENIB (RAF KINASE INHIBITOR) [Suspect]
     Indication: HEPATIC NEOPLASM MALIGNANT
     Dosage: 400 MG, QD
     Route: 048
     Dates: start: 20100122, end: 20100205
  5. AMARYL [Concomitant]
     Indication: DIABETES MELLITUS
  6. ALDACTONE [Concomitant]
     Indication: BLOOD ALBUMIN DECREASED
     Dates: start: 20100206, end: 20100207
  7. XYLOCAINE [Concomitant]
     Indication: ORAL MUCOSA EROSION
     Dates: start: 20100205, end: 20100207
  8. FRANDOL [Concomitant]
     Indication: BENIGN PROSTATIC HYPERPLASIA
     Dates: start: 20100207, end: 20100207
  9. CALBLOCK [Concomitant]
     Indication: HYPERTENSION
  10. AZUNOL [Concomitant]
     Indication: ORAL MUCOSA EROSION
     Dates: start: 20100205, end: 20100207
  11. ALBUMIN (HUMAN) [Concomitant]
     Indication: HYPOALBUMINAEMIA
     Dates: start: 20100205, end: 20100205
  12. TAMSULOSIN HCL [Concomitant]
     Indication: BENIGN PROSTATIC HYPERPLASIA
  13. KINEDAK [Concomitant]
     Indication: HYPERTENSION
  14. EPALRESTAT [Concomitant]
     Indication: HYPERTENSION
     Dates: start: 20060123
  15. LASIX [Concomitant]
     Indication: BLOOD ALBUMIN DECREASED
     Dates: start: 20100205, end: 20100207

REACTIONS (5)
  - HYPOGLYCAEMIA [None]
  - NEPHROTIC SYNDROME [None]
  - RENAL TUBULAR NECROSIS [None]
  - DEHYDRATION [None]
  - HYPOALBUMINAEMIA [None]
